FAERS Safety Report 25320020 (Version 1)
Quarter: 2025Q2

REPORT INFORMATION
  Report Type: Spontaneous
  Country: FR (occurrence: FR)
  Receive Date: 20250515
  Receipt Date: 20250515
  Transmission Date: 20250717
  Serious: Yes (Hospitalization)
  Sender: ANI
  Company Number: FR-ANIPHARMA-2025-FR-000074

PATIENT
  Age: 93 Year
  Sex: Female
  Weight: 61 kg

DRUGS (11)
  1. CANDESARTAN CILEXETIL [Suspect]
     Active Substance: CANDESARTAN CILEXETIL
     Indication: Cardiac failure
     Route: 048
     Dates: start: 2013
  2. SERTRALINE [Suspect]
     Active Substance: SERTRALINE HYDROCHLORIDE
     Route: 048
     Dates: start: 202105
  3. FUROSEMIDE [Suspect]
     Active Substance: FUROSEMIDE
     Route: 048
     Dates: start: 20240611
  4. LERCANIDIPINE HYDROCHLORIDE [Suspect]
     Active Substance: LERCANIDIPINE HYDROCHLORIDE
     Route: 048
     Dates: start: 2013
  5. CHOLECALCIFEROL [Concomitant]
     Active Substance: CHOLECALCIFEROL
  6. ATORVASTATIN [Concomitant]
     Active Substance: ATORVASTATIN
  7. LANSOPRAZOLE [Concomitant]
     Active Substance: LANSOPRAZOLE
  8. POTASSIUM CHLORIDE [Concomitant]
     Active Substance: POTASSIUM CHLORIDE
     Dates: start: 20240611
  9. ELIQUIS [Concomitant]
     Active Substance: APIXABAN
     Dates: start: 2021
  10. ENOXAPARIN [Concomitant]
     Active Substance: ENOXAPARIN
  11. NEBIVOLOL [Suspect]
     Active Substance: NEBIVOLOL
     Route: 048

REACTIONS (4)
  - Fall [Recovered/Resolved with Sequelae]
  - Head injury [Unknown]
  - Joint injury [Unknown]
  - Tibia fracture [Unknown]

NARRATIVE: CASE EVENT DATE: 20240807
